FAERS Safety Report 5787721-3 (Version None)
Quarter: 2008Q2

REPORT INFORMATION
  Report Type: 
  Country: None (occurrence: None)
  Receive Date: 20080624
  Receipt Date: 20080624
  Transmission Date: 20081010
  Serious: Yes (Hospitalization)
  Sender: FDA-Public Use
  Company Number: None

PATIENT
  Age: 74 Year
  Sex: Male
  Weight: 84.8 kg

DRUGS (2)
  1. DOXEPIN HCL [Suspect]
     Indication: DEPRESSION
     Dosage: 100 MG HS PO
     Route: 048
     Dates: start: 19990112, end: 20080616
  2. TIZANIDINE HCL [Suspect]
     Indication: MUSCLE RELAXANT THERAPY
     Dosage: 4 MG EVERY DAY PO
     Route: 048
     Dates: end: 20080616

REACTIONS (1)
  - SYNCOPE [None]
